FAERS Safety Report 24215056 (Version 4)
Quarter: 2024Q3

REPORT INFORMATION
  Report Type: Spontaneous
  Country: BR (occurrence: BR)
  Receive Date: 20240816
  Receipt Date: 20240923
  Transmission Date: 20241016
  Serious: Yes (Other)
  Sender: PFIZER
  Company Number: BR-PFIZER INC-PV202400105224

PATIENT
  Age: 45 Year
  Sex: Female

DRUGS (11)
  1. TALIGLUCERASE ALFA [Suspect]
     Active Substance: TALIGLUCERASE ALFA
     Indication: Gaucher^s disease
     Dosage: 14 IU/KG, EVERY 15 DAYS
     Route: 042
     Dates: start: 20220901
  2. TALIGLUCERASE ALFA [Suspect]
     Active Substance: TALIGLUCERASE ALFA
     Dosage: 14 IU/KG, EVERY 15 DAYS
     Route: 042
     Dates: start: 20240717
  3. TALIGLUCERASE ALFA [Suspect]
     Active Substance: TALIGLUCERASE ALFA
     Dosage: 14 IU/KG, EVERY 15 DAYS
     Route: 042
     Dates: start: 20220926
  4. CALCIUM [Concomitant]
     Active Substance: CALCIUM
     Dosage: UNK
  5. CYANOCOBALAMIN [Concomitant]
     Active Substance: CYANOCOBALAMIN
     Dosage: UNK
  6. QUETIAPINE [Concomitant]
     Active Substance: QUETIAPINE
     Dosage: UNK UNK, 2X/DAY
  7. LOSARTAN [Concomitant]
     Active Substance: LOSARTAN\LOSARTAN POTASSIUM
     Dosage: UNK UNK, 2X/DAY
  8. FLUOXETINE [Concomitant]
     Active Substance: FLUOXETINE HYDROCHLORIDE
     Dosage: UNK UNK, 1X/DAY
  9. ESTRADIOL [Concomitant]
     Active Substance: ESTRADIOL
     Dosage: UNK
  10. CLONAZEPAM [Concomitant]
     Active Substance: CLONAZEPAM
     Dosage: UNK
  11. HYDROCHLOROTHIAZIDE [Concomitant]
     Active Substance: HYDROCHLOROTHIAZIDE
     Dosage: 1/2 TABLET

REACTIONS (16)
  - Retinal detachment [Recovering/Resolving]
  - Uveitis [Unknown]
  - Blindness [Unknown]
  - Cataract [Recovering/Resolving]
  - Thrombosis [Not Recovered/Not Resolved]
  - Hysterotomy [Unknown]
  - Eye haemorrhage [Recovering/Resolving]
  - Arthralgia [Unknown]
  - Back pain [Unknown]
  - Insomnia [Unknown]
  - Hypokinesia [Unknown]
  - Pain in extremity [Unknown]
  - Memory impairment [Not Recovered/Not Resolved]
  - Mobility decreased [Not Recovered/Not Resolved]
  - Trigeminal neuritis [Not Recovered/Not Resolved]
  - Tremor [Not Recovered/Not Resolved]

NARRATIVE: CASE EVENT DATE: 20230101
